FAERS Safety Report 15411228 (Version 1)
Quarter: 2018Q3

REPORT INFORMATION
  Report Type: Spontaneous
  Country: US (occurrence: US)
  Receive Date: 20180919
  Receipt Date: 20180919
  Transmission Date: 20181010
  Serious: Yes (Other)
  Sender: FDA-Public Use
  Company Number: None

PATIENT
  Age: 53 Year
  Sex: Female
  Weight: 80.1 kg

DRUGS (1)
  1. LEMTRADA [Suspect]
     Active Substance: ALEMTUZUMAB
     Dosage: ?          OTHER FREQUENCY:ONCE A YEAR;?
     Route: 041

REACTIONS (2)
  - Drug ineffective [None]
  - Multiple sclerosis relapse [None]

NARRATIVE: CASE EVENT DATE: 20180813
